FAERS Safety Report 23998965 (Version 1)
Quarter: 2024Q2

REPORT INFORMATION
  Report Type: Spontaneous
  Country: US (occurrence: US)
  Receive Date: 20240621
  Receipt Date: 20240621
  Transmission Date: 20240716
  Serious: No
  Sender: FDA-Public Use
  Company Number: US-ARDELYX-2024ARDX001340

PATIENT
  Age: 25 Year
  Sex: Male

DRUGS (2)
  1. IBSRELA [Suspect]
     Active Substance: TENAPANOR HYDROCHLORIDE
     Indication: Irritable bowel syndrome
     Dosage: 50 MG, BID WITH LUNCH AND DINNER
     Route: 065
     Dates: start: 2023
  2. LINACLOTIDE [Suspect]
     Active Substance: LINACLOTIDE
     Indication: Irritable bowel syndrome
     Dosage: 290 MICROGRAM, QAM (EACH MORN)
     Route: 065

REACTIONS (5)
  - Anorectal discomfort [Unknown]
  - Anxiety [Unknown]
  - Hypervigilance [Unknown]
  - Somatic symptom disorder [Unknown]
  - Inappropriate schedule of product administration [Unknown]
